FAERS Safety Report 7493226-4 (Version None)
Quarter: 2011Q2

REPORT INFORMATION
  Report Type: 
  Country: None (occurrence: None)
  Receive Date: 20110519
  Receipt Date: 20110519
  Transmission Date: 20111010
  Serious: Yes (Life-Threatening, Hospitalization)
  Sender: FDA-Public Use
  Company Number: None

PATIENT
  Age: 63 Year
  Sex: Female
  Weight: 90.7194 kg

DRUGS (2)
  1. PLAQUENIL [Suspect]
     Indication: ARTHRITIS
  2. PLAQUENIL [Suspect]
     Indication: RHEUMATOID ARTHRITIS

REACTIONS (4)
  - RASH MACULAR [None]
  - INSOMNIA [None]
  - PRURITUS [None]
  - RASH GENERALISED [None]
